FAERS Safety Report 9501079 (Version 1)
Quarter: 2013Q1

REPORT INFORMATION
  Report Type: Spontaneous
  Country: US (occurrence: None)
  Receive Date: 20130117
  Receipt Date: 20130117
  Transmission Date: 20140127
  Serious: Yes (Other)
  Sender: FDA-Public Use
  Company Number: E2B_00000325

PATIENT
  Age: 24 Year
  Sex: Female

DRUGS (2)
  1. CEFDINIR [Suspect]
     Indication: SINUSITIS
     Dosage: 600 MG (300 MG, 2 IN 1 D), PER ORAL
     Route: 048
     Dates: start: 20120730, end: 20120730
  2. ETHINYL ESTRADIOL AND NORETHINDRONE [Concomitant]

REACTIONS (1)
  - Lip swelling [None]
